FAERS Safety Report 18619496 (Version 14)
Quarter: 2021Q3

REPORT INFORMATION
  Report Type: Report from Study
  Country: CN (occurrence: CN)
  Receive Date: 20201215
  Receipt Date: 20210916
  Transmission Date: 20211014
  Serious: Yes (Death, Hospitalization)
  Sender: FDA-Public Use
  Company Number: CN-ROCHE-2729422

PATIENT
  Age: 58 Year
  Sex: Male
  Weight: 78 kg

DRUGS (21)
  1. LACTULOSE. [Concomitant]
     Active Substance: LACTULOSE
     Route: 048
     Dates: start: 20201220
  2. DEXAMETHASONE ACETATE [Concomitant]
     Active Substance: DEXAMETHASONE ACETATE
     Route: 048
     Dates: start: 20201125, end: 20201127
  3. CARBOPLATIN. [Suspect]
     Active Substance: CARBOPLATIN
     Indication: NON-SMALL CELL LUNG CANCER
     Dosage: FIRST DOSE (660 MG) ADMINISTERED ON 23/SEP/2020.?DATE OF MOST RECENT DOSE (700 MG) OF STUDY DRUG PRI
     Route: 042
     Dates: start: 20200923
  4. OXYCODONE HYDROCHLORIDE. [Concomitant]
     Active Substance: OXYCODONE HYDROCHLORIDE
     Indication: CANCER PAIN
     Dates: start: 20200911
  5. ATEZOLIZUMAB. [Suspect]
     Active Substance: ATEZOLIZUMAB
     Indication: NON-SMALL CELL LUNG CANCER
     Dosage: DATE OF MOST RECENT DOSE OF STUDY DRUG PRIOR TO SAE(SERIOUS ADVERSE EVENT): 26/NOV/2020
     Route: 042
     Dates: start: 20200923
  6. BEVACIZUMAB. [Suspect]
     Active Substance: BEVACIZUMAB
     Indication: NON-SMALL CELL LUNG CANCER
     Dosage: FIRST DOSE (1245 MG) ADMINISTERED ON 23/SEP/2020.?DATE OF MOST RECENT DOSE (1245 MG) OF STUDY DRUG P
     Route: 042
     Dates: start: 20200923
  7. LACTULOSE. [Concomitant]
     Active Substance: LACTULOSE
     Indication: CONSTIPATION
     Route: 048
     Dates: start: 20200925, end: 20201205
  8. TROPISETRON HYDROCHLORIDE [Concomitant]
     Active Substance: TROPISETRON HYDROCHLORIDE
     Dates: start: 20201126, end: 20201126
  9. ATORVASTATIN CALCIUM. [Concomitant]
     Active Substance: ATORVASTATIN CALCIUM
     Indication: HYPERCHOLESTEROLAEMIA
  10. APREPITANT. [Concomitant]
     Active Substance: APREPITANT
     Route: 048
     Dates: start: 20201126, end: 20201128
  11. RECOMBINANT HUMAN GRANULOCYTE COLONY FACTOR (UNK INGREDIENTS) [Concomitant]
     Active Substance: GRANULOCYTE COLONY-STIMULATING FACTOR NOS
     Indication: THROMBOCYTOPENIA
  12. RECOMBINANT HUMAN GRANULOCYTE COLONY FACTOR (UNK INGREDIENTS) [Concomitant]
     Active Substance: GRANULOCYTE COLONY-STIMULATING FACTOR NOS
     Indication: NEUTROPENIA
     Dates: start: 20201208, end: 20201212
  13. TROPISETRON HYDROCHLORIDE [Concomitant]
     Active Substance: TROPISETRON HYDROCHLORIDE
     Dosage: CHEMOTHERAPY ANTIEMETIC
     Dates: start: 20201217, end: 20201217
  14. ATORVASTATIN CALCIUM. [Concomitant]
     Active Substance: ATORVASTATIN CALCIUM
     Indication: HYPERTRIGLYCERIDAEMIA
  15. ATORVASTATIN CALCIUM. [Concomitant]
     Active Substance: ATORVASTATIN CALCIUM
     Indication: ARTERIAL THROMBOSIS
  16. PEMETREXED. [Suspect]
     Active Substance: PEMETREXED
     Indication: NON-SMALL CELL LUNG CANCER
     Dosage: FIRST DOSE (1097 MG) ADMINISTERED ON 23/SEP/2020.?DATE OF MOST RECENT DOSE (800 MG) OF STUDY DRUG PR
     Route: 042
     Dates: start: 20200923
  17. IRBESARTAN HYDROCHLOROTHIAZIDE ZENTIVA [Concomitant]
     Active Substance: HYDROCHLOROTHIAZIDE\IRBESARTAN
     Indication: HYPERTENSION
     Dates: start: 2016
  18. BISOPROLOL FUMARATE. [Concomitant]
     Active Substance: BISOPROLOL FUMARATE
     Indication: HYPERTENSION
     Dates: start: 201902
  19. DEXAMETHASONE ACETATE [Concomitant]
     Active Substance: DEXAMETHASONE ACETATE
     Route: 048
     Dates: start: 20201216, end: 20201218
  20. DEXAMETHASONE ACETATE [Concomitant]
     Active Substance: DEXAMETHASONE ACETATE
     Route: 048
     Dates: start: 20210106, end: 20210108
  21. RECOMBINANT HUMAN GRANULOCYTE COLONY FACTOR (UNK INGREDIENTS) [Concomitant]
     Active Substance: GRANULOCYTE COLONY-STIMULATING FACTOR NOS
     Indication: LEUKOPENIA
     Dates: start: 20201123, end: 20201124

REACTIONS (1)
  - Myelosuppression [Recovered/Resolved]

NARRATIVE: CASE EVENT DATE: 20201208
